FAERS Safety Report 6458994-9 (Version None)
Quarter: 2009Q4

REPORT INFORMATION
  Report Type: 
  Country: None (occurrence: None)
  Receive Date: 20091127
  Receipt Date: 20091026
  Transmission Date: 20100525
  Serious: No
  Sender: FDA-Public Use
  Company Number: US-BAYER-200937480NA

PATIENT
  Age: 43 Year
  Sex: Female
  Weight: 67 kg

DRUGS (1)
  1. MIRENA [Suspect]
     Indication: CONTRACEPTION
     Dosage: CONTINUOUS
     Route: 015
     Dates: start: 20090101, end: 20091009

REACTIONS (5)
  - HEADACHE [None]
  - HYPOAESTHESIA [None]
  - MENORRHAGIA [None]
  - MUSCLE SPASMS [None]
  - NAUSEA [None]
